FAERS Safety Report 10184255 (Version 1)
Quarter: 2014Q2

REPORT INFORMATION
  Report Type: Spontaneous
  Country: US (occurrence: US)
  Receive Date: 20140520
  Receipt Date: 20140520
  Transmission Date: 20141212
  Serious: No
  Sender: FDA-Public Use
  Company Number: US-ASTRAZENECA-2014SE06208

PATIENT
  Sex: Female

DRUGS (1)
  1. RHINOCORT AQUA [Suspect]
     Dosage: 32 MCG, 2 SPRAYS, DAILY
     Route: 045

REACTIONS (3)
  - Adverse event [Unknown]
  - Nasal ulcer [Unknown]
  - Device misuse [Unknown]
